FAERS Safety Report 12342427 (Version 1)
Quarter: 2016Q2

REPORT INFORMATION
  Report Type: Spontaneous
  Country: GB (occurrence: GB)
  Receive Date: 20160506
  Receipt Date: 20160506
  Transmission Date: 20160815
  Serious: Yes (Other)
  Sender: FDA-Public Use
  Company Number: GB-PFIZER INC-2016246535

PATIENT
  Age: 52 Year
  Sex: Male
  Weight: 105 kg

DRUGS (2)
  1. ROSUVASTATIN. [Concomitant]
     Active Substance: ROSUVASTATIN
     Dosage: 1 DF, 1X/DAY
     Dates: start: 20150113
  2. CHAMPIX [Suspect]
     Active Substance: VARENICLINE TARTRATE
     Indication: SMOKING CESSATION THERAPY
     Dosage: 1 MG, UNK
     Dates: start: 20150411, end: 20150422

REACTIONS (4)
  - Mood swings [Unknown]
  - Hypertension [Unknown]
  - Irritability [Unknown]
  - Anger [Unknown]

NARRATIVE: CASE EVENT DATE: 20160411
